FAERS Safety Report 9172479 (Version 1)
Quarter: 2012Q4

REPORT INFORMATION
  Report Type: 
  Country: US (occurrence: US)
  Receive Date: 20120911
  Receipt Date: 20120911
  Transmission Date: 20130627
  Serious: Yes (Hospitalization, Disabling, Other)
  Sender: FDA-Public Use
  Company Number: US-009507513-1009USA04026

PATIENT

DRUGS (2)
  1. FOSAMAX [Suspect]
     Indication: OSTEOPOROSIS
     Dosage: 10 mg, UNK
     Route: 048
     Dates: end: 200606
  2. MK-9278 [Concomitant]
     Dosage: UNK UNK, qd

REACTIONS (42)
  - Fracture nonunion [Unknown]
  - Hip fracture [Unknown]
  - Anaemia postoperative [Unknown]
  - Endometrial cancer [Unknown]
  - Intraductal proliferative breast lesion [Unknown]
  - Modified radical mastectomy [Unknown]
  - Arthropathy [Unknown]
  - Femur fracture [Unknown]
  - Femur fracture [Unknown]
  - Tooth fracture [Unknown]
  - Tooth disorder [Unknown]
  - Leukopenia [Unknown]
  - Fall [Unknown]
  - Depression [Not Recovered/Not Resolved]
  - Anxiety [Not Recovered/Not Resolved]
  - Foot deformity [Unknown]
  - Dermatitis [Unknown]
  - Arthropathy [Unknown]
  - Venous insufficiency [Unknown]
  - Intervertebral disc disorder [Unknown]
  - Radicular pain [Unknown]
  - Myofascial spasm [Unknown]
  - Osteoarthritis [Unknown]
  - Gait disturbance [Unknown]
  - Sciatica [Unknown]
  - Blood disorder [Unknown]
  - Cardiac murmur [Unknown]
  - Mitral valve prolapse [Unknown]
  - Gingivitis [Unknown]
  - Bone loss [Unknown]
  - Cardiac disorder [Unknown]
  - Tooth fracture [Unknown]
  - Parotid gland inflammation [Unknown]
  - Jaw disorder [Unknown]
  - Dental caries [Unknown]
  - Sinus congestion [Unknown]
  - Skin lesion [Unknown]
  - Blood parathyroid hormone increased [Unknown]
  - Arthralgia [Unknown]
  - Drug hypersensitivity [Unknown]
  - Back pain [Unknown]
  - Pain in extremity [Unknown]
